FAERS Safety Report 4819991-X (Version None)
Quarter: 2005Q4

REPORT INFORMATION
  Report Type: 
  Country: None (occurrence: None)
  Receive Date: 20051031
  Receipt Date: 20050829
  Transmission Date: 20060501
  Serious: No
  Sender: FDA-Public Use
  Company Number: 2005PV001301

PATIENT
  Age: 49 Year
  Sex: Female

DRUGS (8)
  1. SYMLIN [Suspect]
     Indication: DIABETES MELLITUS INSULIN-DEPENDENT
     Dosage: 30 MCG; TID; SC
     Route: 058
     Dates: start: 20050822
  2. THYROID TAB [Concomitant]
  3. LANTUS [Concomitant]
  4. HUMALOG [Concomitant]
  5. CORAL CALCIUM [Concomitant]
  6. VITAMIN B6 [Concomitant]
  7. VITAMIN B-12 [Concomitant]
  8. FOLIC ACID [Concomitant]

REACTIONS (3)
  - COUGH [None]
  - INFREQUENT BOWEL MOVEMENTS [None]
  - PHARYNGOLARYNGEAL PAIN [None]
